FAERS Safety Report 21784842 (Version 1)
Quarter: 2022Q4

REPORT INFORMATION
  Report Type: Spontaneous
  Country: NL (occurrence: NL)
  Receive Date: 20221227
  Receipt Date: 20221227
  Transmission Date: 20230112
  Serious: Yes (Other)
  Sender: FDA-Public Use
  Company Number: NL-PFIZER INC-PV202200130909

PATIENT
  Sex: Female
  Weight: 66 kg

DRUGS (1)
  1. INFLIXIMAB [Suspect]
     Active Substance: INFLIXIMAB
     Indication: Crohn^s disease
     Dosage: 600 MG, EVERY 6 WEEKS) (600 MG PER 6 WEKEN IV)
     Route: 065
     Dates: start: 20131205, end: 20221103

REACTIONS (1)
  - Metastatic malignant melanoma [Not Recovered/Not Resolved]
